FAERS Safety Report 8762442 (Version 1)
Quarter: 2012Q4

REPORT INFORMATION
  Report Type: 
  Country: US (occurrence: US)
  Receive Date: 20120830
  Receipt Date: 20120830
  Transmission Date: 20130627
  Serious: No
  Sender: FDA-Public Use
  Company Number: US-PFIZER INC-2012212640

PATIENT
  Age: 37 Year
  Sex: Female
  Weight: 113 kg

DRUGS (3)
  1. LYRICA [Suspect]
     Indication: FIBROMYALGIA
     Dosage: 150 mg, 2x/day
     Route: 048
     Dates: start: 2003
  2. TYLENOL [Concomitant]
     Indication: BACK PAIN
     Dosage: 1100 mg, as needed
     Route: 048
  3. TYLENOL [Concomitant]
     Indication: HEADACHE

REACTIONS (3)
  - Pruritus [Recovered/Resolved]
  - Erythema [Recovered/Resolved]
  - Arthritis [Unknown]
